FAERS Safety Report 9868451 (Version 1)
Quarter: 2014Q1

REPORT INFORMATION
  Report Type: Spontaneous
  Country: US (occurrence: US)
  Receive Date: 20140204
  Receipt Date: 20140204
  Transmission Date: 20141002
  Serious: Yes (Hospitalization, Other)
  Sender: FDA-Public Use
  Company Number: US-B.I. PHARMACEUTICALS,INC./RIDGEFIELD-2014-BI-04675BP

PATIENT
  Sex: Male

DRUGS (1)
  1. PRADAXA [Suspect]
     Indication: ATRIAL FIBRILLATION
     Dates: start: 20110816

REACTIONS (4)
  - Anaemia [Recovered/Resolved]
  - Gastrointestinal haemorrhage [Recovered/Resolved]
  - Transient ischaemic attack [Recovered/Resolved]
  - Mental status changes [Recovered/Resolved]
